FAERS Safety Report 10022359 (Version 1)
Quarter: 2013Q4

REPORT INFORMATION
  Report Type: Spontaneous
  Country: US (occurrence: None)
  Receive Date: 20131223
  Receipt Date: 20131223
  Transmission Date: 20140711
  Serious: Yes (Other)
  Sender: FDA-Public Use
  Company Number: WIL-007-12-US

PATIENT
  Age: 25 Year
  Sex: Female

DRUGS (31)
  1. WILATE [Suspect]
     Dosage: 870 IU (4X 1 / CYCLICAL)), IV
     Route: 042
  2. AMICAR [Suspect]
     Dosage: 2.5 G (1X 1 / D)), UNK.
  3. TRADENAME UNKNOWN [Suspect]
     Route: 042
  4. INSULIN [Concomitant]
  5. INSULIN ASPART [Concomitant]
  6. INSULIN GLARGINE [Concomitant]
  7. ARIPIPRAZOLE [Concomitant]
  8. LISINOPRIL [Concomitant]
  9. METHYLPHENIDATE [Concomitant]
  10. VALACYCLOVIR [Concomitant]
  11. ATORVASTATIN [Concomitant]
  12. VITAMIN B [Concomitant]
  13. DULOXETINE [Concomitant]
  14. OXCARBAZEPINE [Concomitant]
  15. BUMETANIDE [Concomitant]
  16. VERAPAMIL [Concomitant]
  17. AMLODIPINE [Concomitant]
  18. FUROSEMIDE [Concomitant]
  19. ZOLPIDEM [Concomitant]
  20. DOMPERIDONE [Concomitant]
  21. CLONAZEPAM [Concomitant]
  22. FLUOXETIN [Concomitant]
  23. VITAMIN K [Concomitant]
  24. LEVOTHYROXINE [Concomitant]
  25. ALBUTEROL [Concomitant]
  26. VITAMIN D [Concomitant]
  27. PROMETHAZINE [Concomitant]
  28. PANTOPRAZOLE [Concomitant]
  29. HYDROCODONE AND PARACETAMOL [Concomitant]
  30. LABETALOL [Concomitant]
  31. HYDRALAZINE [Concomitant]

REACTIONS (1)
  - Pulmonary embolism [None]
